FAERS Safety Report 5165437-4 (Version None)
Quarter: 2006Q4

REPORT INFORMATION
  Report Type: 
  Country: None (occurrence: None)
  Receive Date: 20061206
  Receipt Date: 20061125
  Transmission Date: 20070319
  Serious: Yes (Hospitalization)
  Sender: FDA-Public Use
  Company Number: DE-AMGEN-UK201668

PATIENT
  Sex: Female

DRUGS (1)
  1. NEUPOGEN [Suspect]
     Indication: PERIPHERAL BLOOD STEM CELL APHERESIS
     Route: 065

REACTIONS (6)
  - BLOOD CREATININE INCREASED [None]
  - BONE PAIN [None]
  - HAEMATURIA [None]
  - MYALGIA [None]
  - MYOGLOBIN BLOOD INCREASED [None]
  - MYOGLOBIN URINE PRESENT [None]
